FAERS Safety Report 10776837 (Version 1)
Quarter: 2015Q1

REPORT INFORMATION
  Report Type: Spontaneous
  Country: US (occurrence: US)
  Receive Date: 20150209
  Receipt Date: 20150209
  Transmission Date: 20150721
  Serious: No
  Sender: FDA-Public Use
  Company Number: US-GLAXOSMITHKLINE-A1080934A

PATIENT

DRUGS (1)
  1. SUMATRIPTAN SOLUTION FOR INJECTION IN PRE-FILLED PEN [Suspect]
     Active Substance: SUMATRIPTAN
     Indication: CLUSTER HEADACHE
     Route: 042
     Dates: start: 20140605

REACTIONS (5)
  - Injection site pain [Unknown]
  - Product quality issue [Unknown]
  - Injection site haemorrhage [Unknown]
  - Injection site bruising [Unknown]
  - Injury associated with device [Unknown]

NARRATIVE: CASE EVENT DATE: 2014
